FAERS Safety Report 6363754-3 (Version None)
Quarter: 2009Q3

REPORT INFORMATION
  Report Type: 
  Country: None (occurrence: None)
  Receive Date: 20090919
  Receipt Date: 20090702
  Transmission Date: 20100115
  Serious: No
  Sender: FDA-Public Use
  Company Number: US-ABBOTT-09P-163-0583667-00

PATIENT
  Sex: Female

DRUGS (3)
  1. HUMIRA [Suspect]
     Indication: RHEUMATOID ARTHRITIS
     Route: 058
     Dates: start: 20080801, end: 20080901
  2. HUMIRA [Suspect]
     Dates: start: 20081001, end: 20090401
  3. HUMIRA [Suspect]
     Route: 058
     Dates: start: 20090401

REACTIONS (6)
  - DRUG DOSE OMISSION [None]
  - FEELING HOT [None]
  - HERPES ZOSTER [None]
  - JOINT SWELLING [None]
  - NAUSEA [None]
  - NECROSIS [None]
